FAERS Safety Report 18706162 (Version 3)
Quarter: 2021Q1

REPORT INFORMATION
  Report Type: Spontaneous
  Country: US (occurrence: US)
  Receive Date: 20210106
  Receipt Date: 20210119
  Transmission Date: 20210419
  Serious: Yes (Life-Threatening, Other)
  Sender: FDA-Public Use
  Company Number: US-PFIZER INC-2021000051

PATIENT
  Age: 53 Year
  Sex: Male

DRUGS (3)
  1. VALPROATE SODIUM. [Suspect]
     Active Substance: VALPROATE SODIUM
     Dosage: 5 DF (5 PILLS)
  2. AMLODIPINE BESILATE [Suspect]
     Active Substance: AMLODIPINE BESYLATE
     Dosage: 75 MG (15 PILLS)
  3. ASPIRIN [ACETYLSALICYLIC ACID] [Suspect]
     Active Substance: ASPIRIN
     Dosage: 30 DF (30 PILLS  APPROXIMATELY 2500 MG)

REACTIONS (4)
  - Suicide attempt [Unknown]
  - Acute kidney injury [Unknown]
  - Shock [Unknown]
  - Intentional overdose [Unknown]
